FAERS Safety Report 8804694 (Version 3)
Quarter: 2013Q1

REPORT INFORMATION
  Report Type: Report from Study
  Country: DE (occurrence: DE)
  Receive Date: 20120924
  Receipt Date: 20130228
  Transmission Date: 20140127
  Serious: Yes (Hospitalization, Other)
  Sender: FDA-Public Use
  Company Number: DE-ABBOTT-12P-062-0980607-00

PATIENT
  Sex: Male
  Weight: 70 kg

DRUGS (1)
  1. HUMIRA [Suspect]
     Indication: CROHN^S DISEASE
     Route: 058
     Dates: start: 201204, end: 20120813

REACTIONS (12)
  - Intestinal stenosis [Unknown]
  - Pneumonia klebsiella [Not Recovered/Not Resolved]
  - Colitis [Unknown]
  - Pseudopolyp [Unknown]
  - Weight decreased [Unknown]
  - Diarrhoea [Unknown]
  - Mucous stools [Unknown]
  - Intestinal fistula [Unknown]
  - Anal fistula [Unknown]
  - Ileus [Unknown]
  - Intestinal perforation [Unknown]
  - Abscess [Unknown]
